FAERS Safety Report 8151581-6 (Version None)
Quarter: 2012Q1

REPORT INFORMATION
  Report Type: 
  Country: None (occurrence: None)
  Receive Date: 20120220
  Receipt Date: 20120208
  Transmission Date: 20120608
  Serious: Yes (Hospitalization, Disabling, Other)
  Sender: FDA-Public Use
  Company Number: DE-ROCHE-GNE324270

PATIENT
  Sex: Male

DRUGS (9)
  1. LUCENTIS [Suspect]
     Indication: AGE-RELATED MACULAR DEGENERATION
     Route: 050
     Dates: start: 20110707, end: 20110801
  2. FUROSEMIDE [Concomitant]
  3. CLOPIDOGREL [Concomitant]
  4. ALLOPURINOL [Concomitant]
  5. LUCENTIS [Suspect]
     Dates: start: 20110801
  6. ACE INHIBITOR (RO 31-2201) [Concomitant]
  7. ESCOR [Concomitant]
  8. DELIX PLUS [Concomitant]
     Dosage: 5/25 MG
  9. AVODART [Concomitant]

REACTIONS (5)
  - HEPATIC VEIN DILATATION [None]
  - RENAL FAILURE ACUTE [None]
  - CONGESTIVE CARDIOMYOPATHY [None]
  - CARDIAC DISORDER [None]
  - PROSTATE CANCER [None]
